FAERS Safety Report 7542956-4 (Version None)
Quarter: 2011Q2

REPORT INFORMATION
  Report Type: 
  Country: None (occurrence: None)
  Receive Date: 20110613
  Receipt Date: 20110607
  Transmission Date: 20111010
  Serious: Yes (Other)
  Sender: FDA-Public Use
  Company Number: US-BRISTOL-MYERS SQUIBB COMPANY-15810377

PATIENT
  Sex: Female

DRUGS (4)
  1. COPAXONE [Concomitant]
  2. TRAZODONE HCL [Suspect]
     Dosage: HALF A BOTTLE
  3. ABILIFY [Suspect]
     Dosage: FOR A WHILE BUT NOT FOR TWO DAYS
  4. LEXAPRO [Suspect]
     Dosage: HALF A BOTTLE

REACTIONS (3)
  - OVERDOSE [None]
  - SUICIDE ATTEMPT [None]
  - MULTIPLE SCLEROSIS [None]
